FAERS Safety Report 14832582 (Version 1)
Quarter: 2018Q2

REPORT INFORMATION
  Report Type: Spontaneous
  Country: SA (occurrence: SA)
  Receive Date: 20180501
  Receipt Date: 20180501
  Transmission Date: 20180711
  Serious: Yes (Other)
  Sender: FDA-Public Use
  Company Number: SA-PURACAP PHARMACEUTICAL LLC-2018EPC00233

PATIENT
  Age: 17 Year
  Sex: Female

DRUGS (4)
  1. UNSPECIFIED PAIN KILLERS [Suspect]
     Active Substance: UNSPECIFIED INGREDIENT
     Route: 048
  2. IBUPROFEN. [Suspect]
     Active Substance: IBUPROFEN
     Route: 048
  3. ERYTHROMYCIN. [Suspect]
     Active Substance: ERYTHROMYCIN
     Route: 048
  4. AMOXICILLIN. [Suspect]
     Active Substance: AMOXICILLIN
     Route: 048

REACTIONS (1)
  - Pancreatitis acute [Unknown]
